FAERS Safety Report 11438378 (Version 1)
Quarter: 2015Q3

REPORT INFORMATION
  Report Type: Spontaneous
  Country: US (occurrence: US)
  Receive Date: 20150901
  Receipt Date: 20150901
  Transmission Date: 20151125
  Serious: No
  Sender: FDA-Public Use
  Company Number: US-ROCHE-1061627

PATIENT
  Sex: Female

DRUGS (5)
  1. BENADRYL [Concomitant]
     Active Substance: DIPHENHYDRAMINE HYDROCHLORIDE
  2. PEGASYS [Suspect]
     Active Substance: PEGINTERFERON ALFA-2A
     Indication: CHRONIC HEPATITIS C
     Dosage: PROCLICK AUTOINJECTOR
     Route: 058
     Dates: start: 20120330
  3. INCIVEK [Suspect]
     Active Substance: TELAPREVIR
     Indication: CHRONIC HEPATITIS C
     Route: 065
     Dates: start: 20120330
  4. RIBAVIRIN. [Suspect]
     Active Substance: RIBAVIRIN
     Indication: CHRONIC HEPATITIS C
     Dosage: DIVIDED DOSES DAILY
     Route: 048
     Dates: start: 20120330
  5. ADVIL [Concomitant]
     Active Substance: IBUPROFEN

REACTIONS (11)
  - Rash [Unknown]
  - Swelling face [Unknown]
  - Skin discolouration [Unknown]
  - Anaemia [Unknown]
  - Headache [Unknown]
  - Erythema [Unknown]
  - Pruritus [Unknown]
  - Fatigue [Unknown]
  - Paraesthesia [Unknown]
  - Back pain [Unknown]
  - Eye infection [Unknown]
